FAERS Safety Report 14848463 (Version 1)
Quarter: 2018Q2

REPORT INFORMATION
  Report Type: Spontaneous
  Country: GB (occurrence: DE)
  Receive Date: 20180504
  Receipt Date: 20180504
  Transmission Date: 20180711
  Serious: Yes (Death, Other)
  Sender: FDA-Public Use
  Company Number: DE-TEVA-2018-DE-889522

PATIENT
  Age: 73 Year
  Sex: Male

DRUGS (5)
  1. BENDAMUSTINE HYDROCHLORIDE. [Suspect]
     Active Substance: BENDAMUSTINE HYDROCHLORIDE
     Indication: COMPOSITE LYMPHOMA
     Route: 042
  2. GEMCITABINE [Suspect]
     Active Substance: GEMCITABINE\GEMCITABINE HYDROCHLORIDE
     Indication: COMPOSITE LYMPHOMA
     Route: 065
     Dates: start: 2015
  3. OXALIPLATIN. [Suspect]
     Active Substance: OXALIPLATIN
     Indication: COMPOSITE LYMPHOMA
     Route: 065
  4. ETOPOSIDE. [Suspect]
     Active Substance: ETOPOSIDE
     Indication: COMPOSITE LYMPHOMA
     Route: 065
     Dates: start: 201506, end: 201507
  5. PIXANTRONE [Suspect]
     Active Substance: PIXANTRONE
     Indication: COMPOSITE LYMPHOMA
     Route: 065
     Dates: start: 201506, end: 201507

REACTIONS (4)
  - Disease progression [Fatal]
  - Pneumonia [Fatal]
  - Off label use [Unknown]
  - Leukopenia [Unknown]

NARRATIVE: CASE EVENT DATE: 2015
